FAERS Safety Report 4481377-8 (Version None)
Quarter: 2004Q4

REPORT INFORMATION
  Report Type: 
  Country: None (occurrence: None)
  Receive Date: 20040923
  Receipt Date: 20040617
  Transmission Date: 20050328
  Serious: No
  Sender: FDA-Public Use
  Company Number: USA031152112

PATIENT
  Age: 72 Year
  Sex: Female

DRUGS (2)
  1. FORTEO [Suspect]
     Indication: OSTEOPOROSIS
     Dosage: 20 UG/DAY
     Dates: start: 20031106
  2. EVISTA [Suspect]
     Indication: OSTEOPOROSIS
     Dates: start: 20030601, end: 20030601

REACTIONS (4)
  - HOT FLUSH [None]
  - INJECTION SITE ERYTHEMA [None]
  - INJECTION SITE HAEMORRHAGE [None]
  - SENSATION OF HEAVINESS [None]
